FAERS Safety Report 10156814 (Version 1)
Quarter: 2014Q2

REPORT INFORMATION
  Report Type: Spontaneous
  Country: US (occurrence: None)
  Receive Date: 20140505
  Receipt Date: 20140505
  Transmission Date: 20141212
  Serious: Yes (Congenital Anomaly)
  Sender: FDA-Public Use
  Company Number: 2014P1003513

PATIENT
  Sex: Male

DRUGS (1)
  1. VALPROATE SODIUM [Suspect]
     Route: 064

REACTIONS (11)
  - Foetal anticonvulsant syndrome [None]
  - Torticollis [None]
  - Hypospadias [None]
  - Inguinal hernia [None]
  - Coloboma [None]
  - Myopia [None]
  - Growth retardation [None]
  - Motor developmental delay [None]
  - Learning disorder [None]
  - Otitis media [None]
  - Foetal exposure during pregnancy [None]
